FAERS Safety Report 9132619 (Version 2)
Quarter: 2013Q1

REPORT INFORMATION
  Report Type: Report from Study
  Country: US (occurrence: US)
  Receive Date: 20130301
  Receipt Date: 20130306
  Transmission Date: 20140127
  Serious: Yes (Other)
  Sender: FDA-Public Use
  Company Number: US-ROCHE-1196509

PATIENT
  Sex: Male

DRUGS (16)
  1. TRASTUZUMAB [Suspect]
     Indication: BREAST CANCER
     Dosage: AS LOADING DOSE
     Route: 042
     Dates: start: 20101004
  2. TRASTUZUMAB [Suspect]
     Dosage: FOLLOWED DOSE AFTER LOADING DOSE
     Route: 042
  3. TRASTUZUMAB [Suspect]
     Dosage: CONTINUE DOSE
     Route: 042
     Dates: start: 20110207
  4. LAPATINIB [Suspect]
     Indication: BREAST CANCER
     Route: 048
     Dates: start: 20101004
  5. LAPATINIB [Suspect]
     Route: 048
     Dates: start: 20110207
  6. CARBOPLATIN [Suspect]
     Indication: BREAST CANCER
     Route: 042
     Dates: start: 20101004
  7. DOCETAXEL [Suspect]
     Indication: BREAST CANCER
     Route: 042
     Dates: start: 20101004
  8. METFORMIN HYDROCHLORIDE [Concomitant]
     Route: 065
  9. DICLOFENAC [Concomitant]
     Route: 065
     Dates: start: 20100614
  10. TADALAFIL [Concomitant]
     Route: 065
     Dates: start: 20100803
  11. NAPROXEN [Concomitant]
  12. OXYCODONE [Concomitant]
  13. PYRIDOXINE HYDROCHLORIDE [Concomitant]
     Route: 065
     Dates: start: 20101206
  14. GABAPENTIN [Concomitant]
     Route: 065
     Dates: start: 20101206
  15. SILDENAFIL CITRATE [Concomitant]
     Route: 065
     Dates: start: 20110321
  16. NORTRIPTYLINE [Concomitant]
     Route: 065
     Dates: start: 20110926

REACTIONS (1)
  - Fracture [Unknown]
